FAERS Safety Report 8178224-X (Version None)
Quarter: 2012Q1

REPORT INFORMATION
  Report Type: 
  Country: None (occurrence: None)
  Receive Date: 20120301
  Receipt Date: 20120224
  Transmission Date: 20120608
  Serious: Yes (Death, Hospitalization)
  Sender: FDA-Public Use
  Company Number: US-CELGENEUS-163-50794-12022819

PATIENT
  Sex: Female

DRUGS (45)
  1. ZYRTEC [Concomitant]
     Dosage: 10 MILLIGRAM
     Route: 048
  2. PROTONIX [Concomitant]
     Dosage: 40 MILLIGRAM
     Route: 048
  3. AMBISOME [Concomitant]
     Route: 065
  4. KYTRIL [Concomitant]
     Indication: NAUSEA
     Dosage: 1 MILLIGRAM
     Route: 048
  5. NOXAFIL [Concomitant]
     Indication: ANTIFUNGAL PROPHYLAXIS
     Dosage: 400 MILLIGRAM
     Route: 048
  6. IMODIUM [Concomitant]
     Dosage: 2 MILLIGRAM
     Route: 048
  7. OXYCODONE HCL [Concomitant]
     Indication: PAIN
     Dosage: 5 MILLIGRAM
     Route: 048
  8. SENOKOT [Concomitant]
     Indication: CONSTIPATION
     Dosage: 50 MILLIGRAM
     Route: 048
  9. MERREM [Concomitant]
     Indication: UROSEPSIS
     Route: 065
     Dates: start: 20120201
  10. DAPTOMYCIN [Concomitant]
     Route: 065
     Dates: start: 20120201
  11. CLOBETASOL PROPIONATE [Concomitant]
     Dosage: 0.05 FOAM
     Route: 065
  12. CALCIUM CARBONATE [Concomitant]
     Route: 048
  13. VALTREX [Concomitant]
     Indication: VIRAL INFECTION
     Dosage: 500 MILLIGRAM
     Route: 048
  14. KLONOPIN [Concomitant]
     Indication: ANXIETY
     Dosage: .25 MILLIGRAM
     Route: 048
  15. ARTIFICIAL TEARS [Concomitant]
     Dosage: 1 DROPS
     Route: 047
  16. LOMOTIL [Concomitant]
     Dosage: 1 TABLET
     Route: 048
  17. VANCOMYCIN [Concomitant]
     Route: 065
     Dates: start: 20120201
  18. FOSCARNET [Concomitant]
     Route: 065
     Dates: start: 20120201
  19. VIDAZA [Suspect]
     Dosage: 75 MILLIGRAM/SQ. METER
     Route: 041
     Dates: start: 20111130, end: 20111206
  20. SORAFENIB [Suspect]
     Dosage: 400 MILLIGRAM
     Route: 048
     Dates: start: 20110104, end: 20120203
  21. KYTRIL [Concomitant]
     Indication: VOMITING
  22. ACTIGALL [Concomitant]
     Indication: LIVER DISORDER
     Dosage: 300 MILLIGRAM
     Route: 048
  23. PREDNISONE TAB [Concomitant]
     Dosage: 5 MILLIGRAM
     Route: 048
  24. NOVOLOG [Concomitant]
     Indication: BLOOD GLUCOSE
     Route: 062
  25. NIFEDIPINE [Concomitant]
     Route: 065
  26. VIDAZA [Suspect]
     Dosage: 75 MILLIGRAM/SQ. METER
     Route: 041
     Dates: start: 20110114, end: 20111110
  27. ENTOCORT EC [Concomitant]
     Dosage: 3 MILLIGRAM
     Route: 048
  28. KLOR-CON [Concomitant]
     Dosage: 40 MILLIEQUIVALENTS
     Route: 048
  29. VIDAZA [Suspect]
     Dosage: 75 MILLIGRAM/SQ. METER
     Route: 041
     Dates: start: 20120104, end: 20120110
  30. PENTAMIDINE [Concomitant]
     Dosage: 300 MILLIGRAM
     Route: 041
     Dates: end: 20111202
  31. MAGNESIUM [Concomitant]
     Dosage: 500 MILLIGRAM
     Route: 048
  32. VANTIN [Concomitant]
     Indication: BACTERIAL INFECTION
     Route: 048
  33. HYDROCORTISONE [Concomitant]
     Route: 065
  34. COREG [Concomitant]
     Indication: BLOOD PRESSURE
     Dosage: 12.5 MILLIGRAM
     Route: 048
  35. VALGANCICLOVIR [Concomitant]
     Indication: ANTIVIRAL PROPHYLAXIS
     Dosage: 450 MILLIGRAM
     Route: 048
  36. PHENERGAN [Concomitant]
     Indication: NAUSEA
     Dosage: 12.5 MILLIGRAM
     Route: 048
  37. PHENERGAN [Concomitant]
     Indication: VOMITING
  38. ZYVOX [Concomitant]
     Route: 065
  39. NORTRIPTYLINE HCL [Concomitant]
     Dosage: 25 MILLIGRAM
     Route: 048
  40. NDX [Concomitant]
     Indication: SKIN DISORDER
     Route: 061
  41. CANCIDAS [Concomitant]
     Indication: ANTIFUNGAL PROPHYLAXIS
     Dosage: 50 MILLIGRAM
     Route: 041
  42. PROGRAF [Concomitant]
     Dosage: .5 MILLIGRAM
     Route: 048
  43. HEPARIN [Concomitant]
     Dosage: 200 UNITS
     Route: 041
  44. MOXIFLOXACIN [Concomitant]
     Route: 065
     Dates: start: 20120201
  45. VITAMIN K TAB [Concomitant]
     Indication: ANTICOAGULANT THERAPY
     Dosage: 10 MILLIGRAM
     Route: 041
     Dates: start: 20120201

REACTIONS (23)
  - HYPOTENSION [None]
  - BLOOD BILIRUBIN INCREASED [None]
  - PLEURAL EFFUSION [None]
  - GALLBLADDER POLYP [None]
  - PNEUMONIA [None]
  - URINARY TRACT INFECTION [None]
  - CELLULITIS [None]
  - COAGULOPATHY [None]
  - PLATELET COUNT DECREASED [None]
  - KLEBSIELLA TEST POSITIVE [None]
  - DYSPNOEA [None]
  - ASCITES [None]
  - BLOOD ALKALINE PHOSPHATASE INCREASED [None]
  - ENTEROCOCCUS TEST POSITIVE [None]
  - DIARRHOEA [None]
  - ENTEROBACTER TEST POSITIVE [None]
  - SEPSIS [None]
  - ATELECTASIS [None]
  - HEPATIC STEATOSIS [None]
  - MULTI-ORGAN FAILURE [None]
  - NEUTROPENIA [None]
  - ALANINE AMINOTRANSFERASE INCREASED [None]
  - CONFUSIONAL STATE [None]
